FAERS Safety Report 18080068 (Version 1)
Quarter: 2020Q3

REPORT INFORMATION
  Report Type: Spontaneous
  Country: FR (occurrence: FR)
  Receive Date: 20200728
  Receipt Date: 20200728
  Transmission Date: 20201103
  Serious: Yes (Life-Threatening)
  Sender: FDA-Public Use
  Company Number: FR-PFIZER INC-2020284764

PATIENT
  Age: 11 Year
  Sex: Male
  Weight: 41 kg

DRUGS (2)
  1. RAPAMUNE [Suspect]
     Active Substance: SIROLIMUS
     Indication: IMMUNOSUPPRESSION
     Dosage: 1 MG, 1X/DAY
     Route: 048
     Dates: start: 20191231, end: 20200515
  2. NOXAFIL [Concomitant]
     Active Substance: POSACONAZOLE
     Dosage: UNK

REACTIONS (4)
  - Cardiac tamponade [Recovered/Resolved]
  - Product use issue [Unknown]
  - Pericarditis [Recovered/Resolved]
  - Off label use [Unknown]

NARRATIVE: CASE EVENT DATE: 202005
